FAERS Safety Report 9323521 (Version 3)
Quarter: 2013Q4

REPORT INFORMATION
  Report Type: Spontaneous
  Country: US (occurrence: US)
  Receive Date: 20130603
  Receipt Date: 20131220
  Transmission Date: 20140711
  Serious: No
  Sender: FDA-Public Use
  Company Number: US-PFIZER INC-2013164838

PATIENT
  Age: 45 Year
  Sex: Female
  Weight: 79.82 kg

DRUGS (8)
  1. XELJANZ [Suspect]
     Indication: RHEUMATOID ARTHRITIS
     Dosage: 5 MG, 2X/DAY
     Route: 048
     Dates: start: 2012, end: 201311
  2. VYVANSE [Concomitant]
     Dosage: 20 MG, UNK
  3. OXYCODONE [Concomitant]
     Dosage: 15 MG, UNK
  4. MORPHINE SULFATE [Concomitant]
     Dosage: 30 MG
  5. XANAX [Concomitant]
     Dosage: 0.25 MG, UNK
  6. PREDNISONE [Concomitant]
     Dosage: 1 MG, UNK
  7. VITAMIN D [Concomitant]
     Dosage: 1000 IU, UNK
  8. BUSPAR [Concomitant]
     Dosage: 10 MG

REACTIONS (2)
  - Drug ineffective [Unknown]
  - Sinusitis [Unknown]
